FAERS Safety Report 19094396 (Version 1)
Quarter: 2021Q2

REPORT INFORMATION
  Report Type: Report from Study
  Country: None (occurrence: US)
  Receive Date: 20210406
  Receipt Date: 20210406
  Transmission Date: 20210717
  Serious: Yes (Hospitalization, Other)
  Sender: FDA-Public Use
  Company Number: US-ABBVIE-21K-163-3839930-00

PATIENT
  Sex: Male

DRUGS (1)
  1. VENCLEXTA [Suspect]
     Active Substance: VENETOCLAX
     Indication: ACUTE MYELOID LEUKAEMIA
     Route: 048
     Dates: start: 20201204

REACTIONS (5)
  - Red blood cell count abnormal [Not Recovered/Not Resolved]
  - Rash [Unknown]
  - Infection [Unknown]
  - White blood cell count decreased [Not Recovered/Not Resolved]
  - Light chain analysis abnormal [Unknown]
